FAERS Safety Report 10162565 (Version 8)
Quarter: 2019Q2

REPORT INFORMATION
  Report Type: Report from Study
  Country: US (occurrence: US)
  Receive Date: 20140509
  Receipt Date: 20190508
  Transmission Date: 20190711
  Serious: Yes (Hospitalization, Other)
  Sender: FDA-Public Use
  Company Number: US-SA-2014SA044342

PATIENT
  Age: 73 Year
  Sex: Female

DRUGS (3)
  1. TERIFLUNOMIDE. [Suspect]
     Active Substance: TERIFLUNOMIDE
     Dosage: 14 MG,QD
     Route: 048
  2. TERIFLUNOMIDE. [Suspect]
     Active Substance: TERIFLUNOMIDE
     Dosage: 7 MG,QD
     Route: 048
     Dates: start: 20140429
  3. TERIFLUNOMIDE. [Suspect]
     Active Substance: TERIFLUNOMIDE
     Indication: MULTIPLE SCLEROSIS
     Dosage: 7 MG,QD
     Route: 048
     Dates: start: 20140323

REACTIONS (15)
  - Muscular weakness [Recovering/Resolving]
  - Confusional state [Unknown]
  - Product dose omission [Unknown]
  - Vomiting [Unknown]
  - Spinal stenosis [Recovering/Resolving]
  - Memory impairment [Unknown]
  - Muscle twitching [Unknown]
  - Memory impairment [Unknown]
  - Cystitis [Unknown]
  - Muscle spasms [Unknown]
  - Wrist fracture [Unknown]
  - Hypertension [Unknown]
  - Fall [Unknown]
  - Urinary incontinence [Unknown]
  - Back pain [Unknown]

NARRATIVE: CASE EVENT DATE: 2014
